FAERS Safety Report 15673140 (Version 3)
Quarter: 2019Q1

REPORT INFORMATION
  Report Type: Spontaneous
  Country: US (occurrence: US)
  Receive Date: 20181129
  Receipt Date: 20190227
  Transmission Date: 20190417
  Serious: No
  Sender: FDA-Public Use
  Company Number: US-PFIZER INC-2018384624

PATIENT
  Age: 56 Year
  Sex: Female

DRUGS (21)
  1. ZOFRAN ODT [Concomitant]
     Active Substance: ONDANSETRON HYDROCHLORIDE
     Dosage: 8 MG, EVERY 6 HOURS (AS NEEDED)
  2. FERROUS SULFATE. [Concomitant]
     Active Substance: FERROUS SULFATE
     Dosage: 1 DF, DAILY
  3. TRASTUZUMAB. [Concomitant]
     Active Substance: TRASTUZUMAB
     Dosage: 21 MG, UNK (OVER 30MIN)
     Route: 042
  4. DOCETAXEL. [Suspect]
     Active Substance: DOCETAXEL
     Indication: BREAST CANCER METASTATIC
     Dosage: 10MG/ML EVERY WEEK FOR 4 CYCLES
     Dates: start: 20111104, end: 20120106
  5. NEOSAR [Concomitant]
     Active Substance: CYCLOPHOSPHAMIDE
     Indication: CHEMOTHERAPY
     Dosage: UNK
  6. NAPROXEN. [Concomitant]
     Active Substance: NAPROXEN
     Dosage: 250 MG, UNK
     Route: 048
     Dates: start: 20100721
  7. ACETAMINOPHEN. [Concomitant]
     Active Substance: ACETAMINOPHEN
     Dosage: 2 DF, AS NEEDED (325 MG TWO TABS BY MOUTH EVERY DAY)
     Route: 048
  8. CALCIUM CARBONATE/ VITAMIN D3 [Concomitant]
     Dosage: 1 DF, 2X/DAY, 600MG/400IU
     Route: 048
     Dates: start: 20100809
  9. LEVOTHYROXINE. [Concomitant]
     Active Substance: LEVOTHYROXINE
     Dosage: 75 UG, 1X/DAY
  10. DOCETAXEL ACTAVIS [Suspect]
     Active Substance: DOCETAXEL
     Indication: BREAST CANCER METASTATIC
     Dosage: 10MG/ML EVERY WEEK FOR 4 CYCLES
     Dates: start: 20111104, end: 20120106
  11. IBUPROFEN. [Concomitant]
     Active Substance: IBUPROFEN
     Dosage: 400 MG, UNK
     Route: 048
     Dates: start: 20100907
  12. DOCETAXEL ACCORD [Suspect]
     Active Substance: DOCETAXEL
     Indication: BREAST CANCER METASTATIC
     Dosage: 10MG/ML EVERY WEEK FOR 4 CYCLES
     Dates: start: 20111104, end: 20120106
  13. SIMVASTATIN. [Concomitant]
     Active Substance: SIMVASTATIN
     Dosage: 10 MG, UNK
     Route: 048
     Dates: start: 20101006
  14. VITAMIN B6 [Concomitant]
     Active Substance: PYRIDOXINE HYDROCHLORIDE
     Dosage: 50 MG, DAILY
  15. DOCETAXEL. [Suspect]
     Active Substance: DOCETAXEL
     Indication: BREAST CANCER METASTATIC
     Dosage: 10 MG/ML EVERY WEEK FOR 4 CYCLES
     Dates: start: 20111104, end: 20120106
  16. DOCETAXEL SANDOZ [Suspect]
     Active Substance: DOCETAXEL
     Indication: BREAST CANCER METASTATIC
     Dosage: 10MG/ML EVERY WEEK FOR 4 CYCLES
     Dates: start: 20111104, end: 20120106
  17. DOCEFREZ [Suspect]
     Active Substance: DOCETAXEL ANHYDROUS
     Indication: BREAST CANCER METASTATIC
     Dosage: 10MG/ML EVERY WEEK FOR 4 CYCLES
     Dates: start: 20111104, end: 20120106
  18. TAXOTERE [Suspect]
     Active Substance: DOCETAXEL
     Indication: BREAST CANCER METASTATIC
     Dosage: 10MG/ML EVERY WEEK FOR 4 CYCLES
     Dates: start: 20111104, end: 20120106
  19. PHENERGAN [Concomitant]
     Active Substance: PROMETHAZINE HYDROCHLORIDE
     Dosage: 25 MG, EVERY 6 HOURS (AS NEEDED)
     Route: 048
     Dates: end: 2018
  20. FELODIPINE. [Concomitant]
     Active Substance: FELODIPINE
     Dosage: 2.5 MG, DAILY
     Dates: start: 20101006
  21. ARIMIDEX [Concomitant]
     Active Substance: ANASTROZOLE
     Dosage: 1 MG, DAILY

REACTIONS (7)
  - Depression [Not Recovered/Not Resolved]
  - Hair disorder [Not Recovered/Not Resolved]
  - Madarosis [Not Recovered/Not Resolved]
  - Alopecia [Not Recovered/Not Resolved]
  - Hair texture abnormal [Not Recovered/Not Resolved]
  - Hair colour changes [Not Recovered/Not Resolved]
  - Anxiety [Not Recovered/Not Resolved]

NARRATIVE: CASE EVENT DATE: 201111
